FAERS Safety Report 6127089-6 (Version None)
Quarter: 2009Q1

REPORT INFORMATION
  Report Type: 
  Country: None (occurrence: None)
  Receive Date: 20090318
  Receipt Date: 20090312
  Transmission Date: 20090719
  Serious: Yes (Hospitalization)
  Sender: FDA-Public Use
  Company Number: GXKR2009DE03064

PATIENT
  Age: 69 Year
  Sex: Female
  Weight: 85 kg

DRUGS (8)
  1. FALITHROM (NGX) (PHENPROCOUMON) FILM-COATED TABLET [Suspect]
     Dosage: ORAL
     Route: 048
     Dates: start: 20070301, end: 20080822
  2. ASPIRIN [Suspect]
     Dosage: 100 MG, QD, ORAL
     Route: 048
     Dates: start: 19900101
  3. AMLODIPINE [Suspect]
     Dosage: 5 MG, QD, ORAL
     Route: 048
  4. SIMVASTATIN [Suspect]
     Dosage: 40 MG, ORAL
     Route: 048
     Dates: start: 20060101
  5. BISOPROLOL (BISOPROLOL) [Concomitant]
  6. INSULIN PROTAPHAN HUMAN (INSULIN HUMAN INJECTION, ISOPHANE) [Concomitant]
  7. RAMIPRIL [Concomitant]
  8. TORSEMIDE [Concomitant]

REACTIONS (1)
  - GASTROINTESTINAL HAEMORRHAGE [None]
